FAERS Safety Report 6460725-3 (Version None)
Quarter: 2009Q4

REPORT INFORMATION
  Report Type: 
  Country: None (occurrence: None)
  Receive Date: 20091130
  Receipt Date: 20091123
  Transmission Date: 20100525
  Serious: Yes (Life-Threatening, Hospitalization)
  Sender: FDA-Public Use
  Company Number: FR-ASTRAZENECA-2009SE28129

PATIENT
  Age: 58 Year
  Sex: Male

DRUGS (11)
  1. XYLOCAINE [Suspect]
     Route: 042
     Dates: start: 20090929, end: 20090930
  2. NEXIUM [Suspect]
     Route: 042
     Dates: start: 20090929, end: 20091002
  3. LOVENOX [Suspect]
     Route: 058
     Dates: start: 20090929, end: 20090930
  4. SPASFON [Suspect]
     Route: 048
     Dates: start: 20091001, end: 20091002
  5. ZOPHREN [Suspect]
     Dosage: 4 MG / 2ML, ONE VIAL
     Route: 042
     Dates: start: 20091002, end: 20091002
  6. PERFALGAN [Suspect]
     Route: 042
     Dates: start: 20090929, end: 20091001
  7. KETOPROFEN [Suspect]
     Route: 042
     Dates: start: 20090930, end: 20091001
  8. SEROPLEX [Concomitant]
  9. ALPRAZOLAM [Concomitant]
  10. NOCTRAN [Concomitant]
  11. DAFALGAN [Concomitant]

REACTIONS (1)
  - LEUKOPENIA [None]
